FAERS Safety Report 6680223-1 (Version None)
Quarter: 2010Q2

REPORT INFORMATION
  Report Type: 
  Country: None (occurrence: None)
  Receive Date: 20100413
  Receipt Date: 20100318
  Transmission Date: 20101027
  Serious: Yes (Other)
  Sender: FDA-Public Use
  Company Number: KR-ROCHE-695837

PATIENT
  Age: 53 Year
  Sex: Female

DRUGS (1)
  1. AVASTIN [Suspect]
     Route: 031

REACTIONS (3)
  - AMAUROSIS FUGAX [None]
  - RETINAL ARTERY OCCLUSION [None]
  - SUDDEN VISUAL LOSS [None]
